FAERS Safety Report 12975082 (Version 1)
Quarter: 2016Q4

REPORT INFORMATION
  Report Type: Spontaneous
  Country: US (occurrence: US)
  Receive Date: 20161125
  Receipt Date: 20161125
  Transmission Date: 20170207
  Serious: No
  Sender: FDA-Public Use
  Company Number: US-ASTRAZENECA-2016SF18666

PATIENT
  Sex: Female
  Weight: 58.5 kg

DRUGS (12)
  1. BENTYL [Concomitant]
     Active Substance: DICYCLOMINE HYDROCHLORIDE
     Indication: ABDOMINAL PAIN UPPER
     Route: 048
  2. SYMBICORT [Suspect]
     Active Substance: BUDESONIDE\FORMOTEROL FUMARATE DIHYDRATE
     Indication: BRONCHIAL OBSTRUCTION
     Dosage: 1 PUFF TWICE A DAY
     Route: 055
  3. SYMBICORT [Suspect]
     Active Substance: BUDESONIDE\FORMOTEROL FUMARATE DIHYDRATE
     Indication: ASTHMA
     Dosage: 1 PUFF TWICE A DAY
     Route: 055
  4. SYMBICORT [Suspect]
     Active Substance: BUDESONIDE\FORMOTEROL FUMARATE DIHYDRATE
     Indication: CHRONIC OBSTRUCTIVE PULMONARY DISEASE
     Dosage: 2 PUFFS IN THE MORNING AND 1 PUFF AT NIGHT
     Route: 055
  5. OMEPRAZOLE. [Suspect]
     Active Substance: OMEPRAZOLE
     Indication: GASTROOESOPHAGEAL REFLUX DISEASE
     Route: 048
  6. LEVOXYL GENERIC [Concomitant]
     Indication: THYROID DISORDER
     Route: 048
  7. ALBUTEROL SULFATE. [Concomitant]
     Active Substance: ALBUTEROL SULFATE
     Indication: FEELING ABNORMAL
     Dosage: 2.5MG 3ML SOLUTION, EVERY 4 HOURS AS NEEDED AS REQUIRED
     Route: 055
  8. SYMBICORT [Suspect]
     Active Substance: BUDESONIDE\FORMOTEROL FUMARATE DIHYDRATE
     Indication: CHRONIC OBSTRUCTIVE PULMONARY DISEASE
     Dosage: 1 PUFF TWICE A DAY
     Route: 055
  9. LIPITOR GENERIC [Concomitant]
     Active Substance: ATORVASTATIN CALCIUM
     Indication: BLOOD CHOLESTEROL
     Route: 048
  10. SYMBICORT [Suspect]
     Active Substance: BUDESONIDE\FORMOTEROL FUMARATE DIHYDRATE
     Indication: ASTHMA
     Dosage: 2 PUFFS IN THE MORNING AND 1 PUFF AT NIGHT
     Route: 055
  11. SYMBICORT [Suspect]
     Active Substance: BUDESONIDE\FORMOTEROL FUMARATE DIHYDRATE
     Indication: BRONCHIAL OBSTRUCTION
     Dosage: 2 PUFFS IN THE MORNING AND 1 PUFF AT NIGHT
     Route: 055
  12. PROAIR INHALER [Concomitant]
     Indication: ASTHMA
     Dosage: 90 UG, 2 PUFFS EVERY 4 TO 6 HOURS AS NEEDED AS REQUIRED
     Route: 055

REACTIONS (18)
  - Irritable bowel syndrome [Unknown]
  - Drug ineffective [Unknown]
  - Intentional product misuse [Unknown]
  - Dementia [Unknown]
  - Weight decreased [Unknown]
  - Yellow skin [Unknown]
  - Feeling jittery [Unknown]
  - Anxiety [Unknown]
  - Crohn^s disease [Unknown]
  - Blood cholesterol increased [Unknown]
  - Emphysema [Unknown]
  - Colitis [Unknown]
  - Nervousness [Unknown]
  - Malaise [Unknown]
  - Memory impairment [Unknown]
  - Heart rate increased [Unknown]
  - Thyroid disorder [Unknown]
  - Insomnia [Unknown]
